FAERS Safety Report 7469866-5 (Version None)
Quarter: 2011Q2

REPORT INFORMATION
  Report Type: 
  Country: None (occurrence: None)
  Receive Date: 20110510
  Receipt Date: 20110328
  Transmission Date: 20111010
  Serious: Yes (Hospitalization, Other)
  Sender: FDA-Public Use
  Company Number: US-BAYER-201024856NA

PATIENT
  Age: 37 Year
  Sex: Female
  Weight: 104.31 kg

DRUGS (10)
  1. YASMIN [Suspect]
     Indication: MENSTRUAL CYCLE MANAGEMENT
  2. NEXIUM [Concomitant]
  3. SYNTHROID [Concomitant]
  4. VANCOMYCIN [Concomitant]
  5. LACTOBACILLUS [Concomitant]
  6. LEVAQUIN [Concomitant]
  7. FLORAJEN [Concomitant]
  8. REGLAN [Concomitant]
  9. YASMIN [Suspect]
     Indication: ORAL CONTRACEPTION
     Dosage: UNK
     Route: 048
     Dates: start: 20050301, end: 20070501
  10. CYMBALTA [Concomitant]

REACTIONS (4)
  - RECTAL HAEMORRHAGE [None]
  - THROMBOSIS MESENTERIC VESSEL [None]
  - ABDOMINAL PAIN [None]
  - COLITIS ISCHAEMIC [None]
